FAERS Safety Report 6778916-0 (Version None)
Quarter: 2010Q2

REPORT INFORMATION
  Report Type: 
  Country: None (occurrence: None)
  Receive Date: 20100618
  Receipt Date: 20100609
  Transmission Date: 20101027
  Serious: Yes (Other)
  Sender: FDA-Public Use
  Company Number: US-JNJFOC-20091103135

PATIENT
  Sex: Male
  Weight: 105.69 kg

DRUGS (4)
  1. INFLIXIMAB [Suspect]
     Indication: PSORIASIS
     Route: 042
  2. INFLIXIMAB [Suspect]
     Route: 042
  3. METHOTREXATE [Concomitant]
  4. ANTIHISTAMINES [Concomitant]
     Indication: PREMEDICATION

REACTIONS (2)
  - BOWEN'S DISEASE [None]
  - SQUAMOUS CELL CARCINOMA [None]
